FAERS Safety Report 10077538 (Version 1)
Quarter: 2014Q2

REPORT INFORMATION
  Report Type: Spontaneous
  Country: LU (occurrence: LU)
  Receive Date: 20140414
  Receipt Date: 20140414
  Transmission Date: 20141212
  Serious: Yes (Other)
  Sender: FDA-Public Use
  Company Number: PHHY2014LU043403

PATIENT
  Age: 12 Year
  Sex: Male

DRUGS (3)
  1. TEGRETOL [Suspect]
     Indication: PARTIAL SEIZURES
     Dosage: 200 MG, BID
     Route: 048
     Dates: start: 201308
  2. KEPPRA [Concomitant]
     Indication: PARTIAL SEIZURES
     Dosage: 500 MG, BID
     Route: 048
  3. RITALIN [Concomitant]
     Dosage: UNK
     Dates: end: 201403

REACTIONS (6)
  - Pharyngitis [Recovering/Resolving]
  - Neutropenia [Recovering/Resolving]
  - Fatigue [Recovering/Resolving]
  - Pallor [Unknown]
  - Thyroxine free decreased [Recovering/Resolving]
  - White blood cell count decreased [None]
